FAERS Safety Report 8271544-X (Version None)
Quarter: 2012Q2

REPORT INFORMATION
  Report Type: 
  Country: None (occurrence: None)
  Receive Date: 20120410
  Receipt Date: 20120405
  Transmission Date: 20120825
  Serious: No
  Sender: FDA-Public Use
  Company Number: US-PFIZER INC-2012086977

PATIENT
  Sex: Female
  Weight: 57.143 kg

DRUGS (5)
  1. ALAVERT [Suspect]
     Indication: SNEEZING
     Dosage: 10 MG, AS NEEDED
     Route: 048
     Dates: start: 20120301
  2. ALAVERT [Suspect]
     Indication: EYE PRURITUS
  3. ALAVERT [Suspect]
     Indication: RHINORRHOEA
  4. ALAVERT [Suspect]
     Indication: NASAL DISCOMFORT
  5. BENADRYL [Suspect]
     Indication: SNEEZING
     Dosage: UNK

REACTIONS (3)
  - DRY THROAT [None]
  - SOMNOLENCE [None]
  - DRUG INEFFECTIVE [None]
